FAERS Safety Report 7397685-7 (Version None)
Quarter: 2011Q2

REPORT INFORMATION
  Report Type: 
  Country: None (occurrence: None)
  Receive Date: 20110406
  Receipt Date: 20110328
  Transmission Date: 20111010
  Serious: Yes (Hospitalization)
  Sender: FDA-Public Use
  Company Number: US-ASTRAZENECA-2011SE17440

PATIENT
  Age: 45 Year
  Sex: Female
  Weight: 73.5 kg

DRUGS (16)
  1. LORAZEPAM [Concomitant]
  2. FLEXERIL [Concomitant]
  3. SEROQUEL XR [Suspect]
     Indication: BIPOLAR DISORDER
     Route: 048
     Dates: start: 20070101, end: 20090101
  4. SEROQUEL XR [Suspect]
     Route: 048
     Dates: start: 20090101
  5. NEXIUM [Suspect]
     Route: 048
  6. BACLOFEN [Concomitant]
  7. TRAZODONE HCL [Concomitant]
  8. LYRICA [Concomitant]
  9. SUCALFATE [Concomitant]
  10. AMITIZA [Concomitant]
  11. VALTREX [Concomitant]
  12. VYVANSE [Concomitant]
  13. TYSABRI [Concomitant]
  14. ABILIFY [Concomitant]
  15. EFFEXOR XR [Concomitant]
  16. MYACALCIN SPRAY [Concomitant]
     Indication: OSTEOPOROSIS

REACTIONS (8)
  - PANCREATIC NEOPLASM [None]
  - CHOLECYSTECTOMY [None]
  - ERUCTATION [None]
  - PAIN [None]
  - HERPES ZOSTER [None]
  - SPLENECTOMY [None]
  - CONSTIPATION [None]
  - ABDOMINAL PAIN [None]
